FAERS Safety Report 8837952 (Version 2)
Quarter: 2012Q4

REPORT INFORMATION
  Report Type: Report from Study
  Country: US (occurrence: US)
  Receive Date: 20121012
  Receipt Date: 20121018
  Transmission Date: 20130627
  Serious: Yes (Hospitalization)
  Sender: FDA-Public Use
  Company Number: US-US-EMD SERONO, INC.-7165935

PATIENT
  Age: 47 Year
  Sex: Female
  Weight: 100 kg

DRUGS (3)
  1. REBIF [Suspect]
     Indication: MULTIPLE SCLEROSIS
     Route: 058
     Dates: start: 20080226
  2. IMIPRAMINE [Concomitant]
     Indication: INCONTINENCE
  3. AMPYRA [Concomitant]
     Indication: PRODUCT USED FOR UNKNOWN INDICATION
     Dosage: every 12 hours
     Dates: end: 20121003

REACTIONS (3)
  - Thrombosis [Recovered/Resolved]
  - Muscle spasms [Recovering/Resolving]
  - Influenza like illness [Recovering/Resolving]
